FAERS Safety Report 5873771-5 (Version None)
Quarter: 2008Q3

REPORT INFORMATION
  Report Type: 
  Country: None (occurrence: None)
  Receive Date: 20080904
  Receipt Date: 20080904
  Transmission Date: 20090109
  Serious: Yes (Hospitalization, Other)
  Sender: FDA-Public Use
  Company Number: None

PATIENT
  Age: 85 Year
  Sex: Female
  Weight: 52 kg

DRUGS (13)
  1. WARFARIN SODIUM [Suspect]
     Indication: FRACTURE TREATMENT
     Dosage: 1MG DAILY ORAL
     Route: 048
     Dates: start: 20080524, end: 20080624
  2. WARFARIN SODIUM [Suspect]
     Indication: HIP SURGERY
     Dosage: 1MG DAILY ORAL
     Route: 048
     Dates: start: 20080524, end: 20080624
  3. ASPIRIN [Concomitant]
  4. METOPROLOL TARTRATE [Concomitant]
  5. INDOMETHACIN [Concomitant]
  6. OXYCODONE HCL [Concomitant]
  7. MESALAMINE [Concomitant]
  8. ROSUVASTATIN [Concomitant]
  9. IRON [Concomitant]
  10. NTG SL [Concomitant]
  11. OCULAR LUBRICANT [Concomitant]
  12. FUROSEMIDE [Concomitant]
  13. CLOPIDOGREL [Concomitant]

REACTIONS (2)
  - GASTROINTESTINAL HAEMORRHAGE [None]
  - THROMBOSIS [None]
